FAERS Safety Report 6171061-7 (Version None)
Quarter: 2009Q2

REPORT INFORMATION
  Report Type: 
  Country: None (occurrence: None)
  Receive Date: 20090428
  Receipt Date: 20090428
  Transmission Date: 20091009
  Serious: Yes (Hospitalization)
  Sender: FDA-Public Use
  Company Number: None

PATIENT
  Age: 67 Year
  Sex: Male
  Weight: 81.6475 kg

DRUGS (2)
  1. LIBRAX [Suspect]
     Indication: IRRITABLE BOWEL SYNDROME
     Dosage: 1 EVERY 6 HRS AS NEEDED PO
     Route: 048
     Dates: start: 20090423, end: 20090423
  2. LIBRAX [Suspect]
     Indication: IRRITABLE BOWEL SYNDROME
     Dosage: 1 EVERY 6 HRS AS NEEDED PO
     Route: 048
     Dates: start: 20090424, end: 20090424

REACTIONS (2)
  - ABDOMINAL PAIN UPPER [None]
  - PRODUCT QUALITY ISSUE [None]
